FAERS Safety Report 5964584-4 (Version None)
Quarter: 2008Q4

REPORT INFORMATION
  Report Type: 
  Country: None (occurrence: None)
  Receive Date: 20081119
  Receipt Date: 20081104
  Transmission Date: 20090506
  Serious: Yes (Other)
  Sender: FDA-Public Use
  Company Number: 2008PL000188

PATIENT
  Age: 40 Year
  Sex: Male

DRUGS (2)
  1. AZATHIOPRINE [Suspect]
     Indication: BEHCET'S SYNDROME
     Dosage: PO
     Route: 048
  2. CORTICOSTEROIDS [Concomitant]

REACTIONS (6)
  - HEPATIC ENZYME INCREASED [None]
  - NECROSIS [None]
  - OEDEMA PERIPHERAL [None]
  - PAIN IN EXTREMITY [None]
  - PYREXIA [None]
  - THROMBOPHLEBITIS SUPERFICIAL [None]
